FAERS Safety Report 5762574-8 (Version None)
Quarter: 2008Q2

REPORT INFORMATION
  Report Type: 
  Country: None (occurrence: None)
  Receive Date: 20080609
  Receipt Date: 20080605
  Transmission Date: 20081010
  Serious: Yes (Hospitalization)
  Sender: FDA-Public Use
  Company Number: B0524102A

PATIENT
  Age: 41 Year
  Sex: Female
  Weight: 55 kg

DRUGS (4)
  1. LAPATINIB [Suspect]
     Dosage: 1500MG PER DAY
     Dates: end: 20080601
  2. FLUOROURACIL [Suspect]
     Dosage: 950MG PER DAY
     Dates: end: 20080516
  3. EPIRUBICIN [Suspect]
     Dosage: 120MG PER DAY
     Dates: end: 20080516
  4. CYCLOPHOSPHAMIDE [Suspect]
     Dosage: 850MG PER DAY
     Dates: end: 20080516

REACTIONS (1)
  - HYPERPYREXIA [None]
